FAERS Safety Report 20848195 (Version 4)
Quarter: 2022Q2

REPORT INFORMATION
  Report Type: Report from Study
  Country: BR (occurrence: BR)
  Receive Date: 20220519
  Receipt Date: 20220617
  Transmission Date: 20220721
  Serious: Yes (Hospitalization, Other)
  Sender: FDA-Public Use
  Company Number: BR-BRISTOL-MYERS SQUIBB COMPANY-2022-041583

PATIENT
  Age: 81 Year
  Sex: Male
  Weight: 72 kg

DRUGS (29)
  1. AZACITIDINE [Suspect]
     Active Substance: AZACITIDINE
     Indication: Myelodysplastic syndrome
     Dosage: 7 DAYS WITHIN THE FIRST 9 DAYS OF 28 DAYS CYCLE (75 MG/M2)
     Route: 058
     Dates: start: 20220411
  2. VENETOCLAX [Suspect]
     Active Substance: VENETOCLAX
     Indication: Myelodysplastic syndrome
     Dosage: 14 DAYS ON 14 DAYS OFF (100 MG,1 IN 1 D)
     Route: 048
     Dates: start: 20220411
  3. CARVEDILOL [Concomitant]
     Active Substance: CARVEDILOL
     Indication: Atrioventricular block
     Route: 048
  4. CARVEDILOL [Concomitant]
     Active Substance: CARVEDILOL
     Indication: Hypercholesterolaemia
     Dosage: 50 MG (25 MG,2 IN 1 D)
     Route: 048
     Dates: start: 2015
  5. CARVEDILOL [Concomitant]
     Active Substance: CARVEDILOL
     Route: 048
  6. CARVEDILOL [Concomitant]
     Active Substance: CARVEDILOL
     Dosage: 1 IN 1 D
     Route: 048
  7. SPIRONOLACTONE [Concomitant]
     Active Substance: SPIRONOLACTONE
     Indication: Atrioventricular block
     Route: 048
  8. SPIRONOLACTONE [Concomitant]
     Active Substance: SPIRONOLACTONE
     Dosage: 25 MG (25 MG,1 IN 1)
     Route: 048
     Dates: start: 2015
  9. SPIRONOLACTONE [Concomitant]
     Active Substance: SPIRONOLACTONE
     Route: 048
  10. SIMVASTATIN [Concomitant]
     Active Substance: SIMVASTATIN
     Indication: Hypercholesterolaemia
     Dosage: 1 IN 1 D
     Route: 048
  11. SIMVASTATIN [Concomitant]
     Active Substance: SIMVASTATIN
     Indication: Product used for unknown indication
     Dosage: 20 MG, 1 IN 1 D
     Route: 048
     Dates: start: 2015
  12. TAMSULOSIN [Concomitant]
     Active Substance: TAMSULOSIN
     Indication: Benign prostatic hyperplasia
     Dosage: 1 IN 1 D
     Route: 048
  13. TAMSULOSIN [Concomitant]
     Active Substance: TAMSULOSIN
     Indication: Product used for unknown indication
     Dosage: 1 IN 1 D
     Route: 048
     Dates: start: 2012
  14. TAMSULOSIN [Concomitant]
     Active Substance: TAMSULOSIN
     Dosage: 1 IN 1 D
     Route: 048
  15. FINASTERIDE [Concomitant]
     Active Substance: FINASTERIDE
     Indication: Benign prostatic hyperplasia
     Dosage: 1 IN 1 D
     Route: 048
  16. FINASTERIDE [Concomitant]
     Active Substance: FINASTERIDE
     Indication: Product used for unknown indication
     Dosage: 1 IN 1 D
     Route: 048
     Dates: start: 2012
  17. FINASTERIDE [Concomitant]
     Active Substance: FINASTERIDE
     Dosage: 1 IN 1 D
     Route: 048
  18. LEVOFLOXACIN [Concomitant]
     Active Substance: LEVOFLOXACIN
     Indication: Prophylaxis
     Dosage: 1 IN 1 D
     Route: 048
  19. LEVOFLOXACIN [Concomitant]
     Active Substance: LEVOFLOXACIN
     Dosage: 1 IN 1 D
     Route: 048
     Dates: start: 20120412
  20. LEVOFLOXACIN [Concomitant]
     Active Substance: LEVOFLOXACIN
     Dosage: 1 IN 1 D
     Route: 048
  21. ACYCLOVIR [Concomitant]
     Active Substance: ACYCLOVIR
     Indication: Prophylaxis
     Dosage: 2 IN 1 D
     Route: 048
  22. ACYCLOVIR [Concomitant]
     Active Substance: ACYCLOVIR
     Dosage: 2 IN 1 D
     Route: 048
  23. ACYCLOVIR [Concomitant]
     Active Substance: ACYCLOVIR
     Indication: Prophylaxis
     Dosage: 2 IN 1 D
     Route: 048
     Dates: start: 20120412
  24. SULFAMETHOXAZOLE\TRIMETHOPRIM [Concomitant]
     Active Substance: SULFAMETHOXAZOLE\TRIMETHOPRIM
     Indication: Prophylaxis
     Dosage: 800+160 MG
     Route: 048
     Dates: start: 20120413
  25. HUMAN RED BLOOD CELL [Concomitant]
     Active Substance: HUMAN RED BLOOD CELL
     Indication: Product used for unknown indication
     Dosage: 1 ONCE
     Dates: start: 20220228, end: 20220228
  26. PLATELETS TRANSFUSION [Concomitant]
     Indication: Product used for unknown indication
     Dosage: 1 UNIT ONCE
     Dates: start: 20220420, end: 20220420
  27. PLATELETS TRANSFUSION [Concomitant]
     Dosage: 1 UNIT ONCE
     Dates: start: 20220426, end: 20220426
  28. FILGRASTIM [Concomitant]
     Active Substance: FILGRASTIM
     Indication: Cytopenia
     Dosage: 600 MCG
     Route: 058
     Dates: start: 20220425, end: 20220425
  29. FILGRASTIM [Concomitant]
     Active Substance: FILGRASTIM
     Dosage: 600 MCG
     Route: 058
     Dates: start: 20220429, end: 20220429

REACTIONS (2)
  - Febrile neutropenia [Recovered/Resolved]
  - Erysipelas [Not Recovered/Not Resolved]

NARRATIVE: CASE EVENT DATE: 20220506
